FAERS Safety Report 5370491-0 (Version None)
Quarter: 2007Q2

REPORT INFORMATION
  Report Type: 
  Country: None (occurrence: None)
  Receive Date: 20070625
  Receipt Date: 20070625
  Transmission Date: 20071010
  Serious: Yes (Other)
  Sender: FDA-Public Use
  Company Number: None

PATIENT
  Age: 16 Year

DRUGS (4)
  1. BACTRIM DS [Suspect]
     Indication: INFECTION
     Dosage: BID PO
     Route: 048
  2. CIMETADIN [Concomitant]
  3. PHENERGAN HCL [Concomitant]
  4. SOLU-MEDROL [Concomitant]

REACTIONS (4)
  - ERYTHEMA [None]
  - PRURITUS [None]
  - RASH [None]
  - SKIN REACTION [None]
